FAERS Safety Report 7770463-2 (Version None)
Quarter: 2011Q3

REPORT INFORMATION
  Report Type: 
  Country: None (occurrence: None)
  Receive Date: 20110922
  Receipt Date: 20100802
  Transmission Date: 20111222
  Serious: Yes (Other)
  Sender: FDA-Public Use
  Company Number: US-ASTRAZENECA-2007UW07684

PATIENT
  Age: 71 Year
  Sex: Female
  Weight: 69.4 kg

DRUGS (19)
  1. PRAVACHOL [Concomitant]
  2. METFORMIN [Concomitant]
  3. LIPITOR [Concomitant]
  4. SEROQUEL [Suspect]
     Indication: SCHIZOPHRENIA
     Route: 048
     Dates: start: 20011128, end: 20030101
  5. ACCOLATE [Concomitant]
  6. ABILIFY [Concomitant]
  7. CERUMENEX [Concomitant]
  8. DIOVAN [Concomitant]
  9. SEROQUEL [Suspect]
     Route: 048
     Dates: start: 20030131
  10. FLOVENT [Concomitant]
  11. ADVAIR DISKUS 100/50 [Concomitant]
  12. VITAMIN D [Concomitant]
  13. CALCIUM CARBONATE [Concomitant]
  14. SEROQUEL [Suspect]
     Indication: DELUSION
     Route: 048
     Dates: start: 20011128, end: 20030101
  15. RISPERDAL [Concomitant]
     Indication: SCHIZOPHRENIA
     Dates: start: 20041123, end: 20060717
  16. SEROQUEL [Suspect]
     Route: 048
     Dates: start: 20030131
  17. VERAPAMIL [Concomitant]
  18. SINGULAIR [Concomitant]
  19. ASPIRIN [Concomitant]

REACTIONS (10)
  - THIRST [None]
  - TREMOR [None]
  - ASTHMA [None]
  - CATARACT [None]
  - DELUSION [None]
  - TYPE 2 DIABETES MELLITUS [None]
  - SELF-INJURIOUS IDEATION [None]
  - CONSTIPATION [None]
  - ARTHRITIS [None]
  - TARDIVE DYSKINESIA [None]
